FAERS Safety Report 8695061 (Version 2)
Quarter: 2012Q4

REPORT INFORMATION
  Report Type: Report from Study
  Country: JP (occurrence: JP)
  Receive Date: 20120731
  Receipt Date: 20121012
  Transmission Date: 20130627
  Serious: Yes (Death, Hospitalization, Other)
  Sender: FDA-Public Use
  Company Number: JP-ROCHE-1093378

PATIENT
  Age: 73 Year
  Sex: Female

DRUGS (31)
  1. ROACTEMRA [Suspect]
     Indication: RHEUMATOID ARTHRITIS
     Route: 041
     Dates: start: 20090629, end: 20090629
  2. ROACTEMRA [Suspect]
     Indication: RHEUMATOID ARTHRITIS
     Route: 041
     Dates: start: 20090730, end: 20090730
  3. ROACTEMRA [Suspect]
     Indication: RHEUMATOID ARTHRITIS
     Route: 041
     Dates: start: 20090827, end: 20090827
  4. ROACTEMRA [Suspect]
     Indication: RHEUMATOID ARTHRITIS
     Route: 041
     Dates: start: 20090924, end: 20090924
  5. ROACTEMRA [Suspect]
     Indication: RHEUMATOID ARTHRITIS
     Route: 041
     Dates: start: 20091022, end: 20091022
  6. ROACTEMRA [Suspect]
     Indication: RHEUMATOID ARTHRITIS
     Route: 041
     Dates: start: 20091119, end: 20091119
  7. ROACTEMRA [Suspect]
     Indication: RHEUMATOID ARTHRITIS
     Route: 041
     Dates: start: 20091217, end: 20091217
  8. ROACTEMRA [Suspect]
     Indication: RHEUMATOID ARTHRITIS
     Route: 041
     Dates: start: 20100114, end: 20100215
  9. ROACTEMRA [Suspect]
     Indication: RHEUMATOID ARTHRITIS
     Route: 041
     Dates: start: 20100323, end: 20100323
  10. ROACTEMRA [Suspect]
     Indication: RHEUMATOID ARTHRITIS
     Route: 041
     Dates: start: 20100419, end: 20100419
  11. ROACTEMRA [Suspect]
     Indication: RHEUMATOID ARTHRITIS
     Route: 041
     Dates: start: 20100517, end: 20100517
  12. ROACTEMRA [Suspect]
     Indication: RHEUMATOID ARTHRITIS
     Route: 041
     Dates: start: 20100614, end: 20100614
  13. ROACTEMRA [Suspect]
     Indication: RHEUMATOID ARTHRITIS
     Route: 041
     Dates: start: 20100712, end: 20110823
  14. ROACTEMRA [Suspect]
     Indication: RHEUMATOID ARTHRITIS
     Route: 041
     Dates: start: 20110921, end: 20110921
  15. ROACTEMRA [Suspect]
     Indication: RHEUMATOID ARTHRITIS
     Route: 041
     Dates: start: 20111020, end: 20111020
  16. PREDNISOLONE [Suspect]
     Indication: RHEUMATOID ARTHRITIS
     Dosage: form:POR
     Route: 048
     Dates: end: 20090419
  17. PREDNISOLONE [Suspect]
     Indication: RHEUMATOID ARTHRITIS
     Dosage: form:POR
     Route: 048
     Dates: start: 20090420, end: 20090826
  18. PREDNISOLONE [Suspect]
     Indication: RHEUMATOID ARTHRITIS
     Dosage: form:POR
     Route: 048
     Dates: start: 20090827, end: 20090923
  19. PREDNISOLONE [Suspect]
     Indication: RHEUMATOID ARTHRITIS
     Dosage: form:POR
     Route: 048
     Dates: start: 20090924
  20. PREDNISOLONE [Suspect]
     Indication: RHEUMATOID ARTHRITIS
     Dosage: form:POR
     Route: 048
     Dates: end: 20111120
  21. EVISTA [Concomitant]
     Indication: OSTEOPOROSIS
     Route: 048
     Dates: end: 20090618
  22. ONEALFA [Concomitant]
     Indication: OSTEOPOROSIS
     Route: 048
     Dates: end: 20111120
  23. HERBESSER R [Concomitant]
     Indication: ANGINA PECTORIS
     Route: 048
  24. HICEE [Concomitant]
     Route: 048
     Dates: end: 20111120
  25. ETODOLAC [Concomitant]
     Indication: RHEUMATOID ARTHRITIS
     Dosage: drug name provided as RAIPECK
     Route: 048
  26. METHYCOBAL [Concomitant]
     Indication: NEUROPATHY PERIPHERAL
     Route: 048
     Dates: end: 20111120
  27. PARIET [Concomitant]
     Indication: GASTRITIS
     Route: 048
     Dates: end: 20111119
  28. LENDORMIN D [Concomitant]
     Indication: INSOMNIA
     Route: 048
     Dates: end: 20111120
  29. VOLTAREN [Concomitant]
     Indication: RHEUMATOID ARTHRITIS
     Dosage: Proper quantity, form:JEL
     Route: 061
     Dates: start: 20090707, end: 20090826
  30. KLARICID [Concomitant]
     Indication: PROPHYLAXIS
     Route: 048
     Dates: start: 20090702, end: 20111120
  31. ACTONEL [Concomitant]
     Indication: OSTEOPOROSIS
     Route: 048
     Dates: start: 20101101, end: 20111120

REACTIONS (7)
  - Disseminated intravascular coagulation [Fatal]
  - Sepsis [Fatal]
  - Cerebral haemorrhage [Fatal]
  - Spinal cord injury [Not Recovered/Not Resolved]
  - Lumbar spinal stenosis [Not Recovered/Not Resolved]
  - Cardiac failure [Unknown]
  - Arthralgia [Unknown]
